FAERS Safety Report 18721595 (Version 3)
Quarter: 2021Q1

REPORT INFORMATION
  Report Type: Report from Study
  Country: BR (occurrence: BR)
  Receive Date: 20210110
  Receipt Date: 20210318
  Transmission Date: 20210419
  Serious: Yes (Death, Hospitalization, Other)
  Sender: FDA-Public Use
  Company Number: BR-B.I. PHARMACEUTICALS,INC./RIDGEFIELD-2021-BI-074948

PATIENT
  Age: 59 Year
  Sex: Male
  Weight: 60 kg

DRUGS (7)
  1. CLOPIDOGREL [Concomitant]
     Active Substance: CLOPIDOGREL BISULFATE
     Indication: CARDIAC DISORDER
     Route: 048
  2. SPIRIVA RESPIMAT [Suspect]
     Active Substance: TIOTROPIUM BROMIDE
     Indication: CHRONIC OBSTRUCTIVE PULMONARY DISEASE
  3. ALENIA [BUDESONIDE;FORMOTEROL FUMARATE] [Concomitant]
     Active Substance: BUDESONIDE\FORMOTEROL FUMARATE
     Indication: EMPHYSEMA
     Dosage: MEDICATION WAS PRESCRIBED TO BE USED TWICE DAILY BUT IT WAS USED WHEN NECESSARY.
     Route: 055
  4. ATENOLOL. [Concomitant]
     Active Substance: ATENOLOL
     Indication: DIURETIC THERAPY
     Route: 048
  5. LOSARTANA POTASSICA [Concomitant]
     Active Substance: LOSARTAN
     Indication: BLOOD PRESSURE MEASUREMENT
     Route: 048
  6. SPIRIVA RESPIMAT [Suspect]
     Active Substance: TIOTROPIUM BROMIDE
     Indication: EMPHYSEMA
     Dosage: INITIALLY  2 PUFFS AS PRESCRIBED BY THE PHYSICIAN WITH THE POSSIBILITY OF MORE DOSAGES, ALSO RECOMME
     Route: 048
     Dates: end: 20201230
  7. SINVASTATINA [Concomitant]
     Active Substance: SIMVASTATIN
     Indication: PRODUCT USED FOR UNKNOWN INDICATION
     Route: 048

REACTIONS (8)
  - Chronic obstructive pulmonary disease [Fatal]
  - Diabetes mellitus [Not Recovered/Not Resolved]
  - Pneumonia [Recovered/Resolved]
  - Swelling [Not Recovered/Not Resolved]
  - Lung neoplasm malignant [Fatal]
  - Cardiac arrest [Recovered/Resolved]
  - Venous occlusion [Recovered/Resolved]
  - Emphysema [Not Recovered/Not Resolved]

NARRATIVE: CASE EVENT DATE: 2013
